FAERS Safety Report 13451739 (Version 2)
Quarter: 2017Q2

REPORT INFORMATION
  Report Type: Spontaneous
  Country: US (occurrence: US)
  Receive Date: 20170418
  Receipt Date: 20170606
  Transmission Date: 20170830
  Serious: No
  Sender: FDA-Public Use
  Company Number: US-PFIZER INC-2017162106

PATIENT
  Age: 62 Year
  Sex: Female
  Weight: 90.7 kg

DRUGS (10)
  1. FLEXERIL [Concomitant]
     Active Substance: CYCLOBENZAPRINE HYDROCHLORIDE
     Indication: MUSCULOSKELETAL STIFFNESS
  2. FLUOXETINE HCL [Concomitant]
     Active Substance: FLUOXETINE HYDROCHLORIDE
     Indication: DEPRESSION
     Dosage: 20 MG, 2X/DAY
  3. NEURONTIN [Suspect]
     Active Substance: GABAPENTIN
     Indication: FIBROMYALGIA
     Dosage: UNK
  4. LYRICA [Concomitant]
     Active Substance: PREGABALIN
     Indication: FIBROMYALGIA
     Dosage: 75 MG, 3X/DAY
     Route: 048
     Dates: end: 2017
  5. FLEXERIL [Concomitant]
     Active Substance: CYCLOBENZAPRINE HYDROCHLORIDE
     Indication: MUSCLE SPASMS
     Dosage: 10 MG, AS NEEDED (TWICE A DAY AS NEEDED)
  6. NEURONTIN [Suspect]
     Active Substance: GABAPENTIN
     Indication: DEPRESSION
  7. MELOXICAM. [Concomitant]
     Active Substance: MELOXICAM
     Indication: BONE DISORDER
  8. PLAQUENIL [Concomitant]
     Active Substance: HYDROXYCHLOROQUINE SULFATE
     Indication: SYSTEMIC LUPUS ERYTHEMATOSUS
     Dosage: 200 MG, 1X/DAY
  9. NEURONTIN [Suspect]
     Active Substance: GABAPENTIN
     Indication: PAIN
  10. MELOXICAM. [Concomitant]
     Active Substance: MELOXICAM
     Indication: MUSCLE DISORDER
     Dosage: 15 MG, 1X/DAY (AT BEDTIME)

REACTIONS (7)
  - Restless legs syndrome [Unknown]
  - Balance disorder [Unknown]
  - Drug ineffective for unapproved indication [Unknown]
  - Thinking abnormal [Unknown]
  - Gait disturbance [Unknown]
  - Dizziness [Unknown]
  - Feeling abnormal [Unknown]
